FAERS Safety Report 5252654-8 (Version None)
Quarter: 2007Q1

REPORT INFORMATION
  Report Type: 
  Country: None (occurrence: None)
  Receive Date: 20070301
  Receipt Date: 20061117
  Transmission Date: 20070707
  Serious: No
  Sender: FDA-Public Use
  Company Number: US-GLAXOSMITHKLINE-A0626144A

PATIENT
  Age: 52 Year
  Sex: Female
  Weight: 90 kg

DRUGS (7)
  1. LAMICTAL [Suspect]
     Dosage: 25MG PER DAY
     Route: 048
     Dates: start: 20061020
  2. LEXAPRO [Concomitant]
     Dosage: 10MG PER DAY
     Route: 048
     Dates: start: 20061110
  3. LYRICA [Concomitant]
     Dosage: 150MG TWICE PER DAY
     Route: 048
     Dates: start: 20060101
  4. VOLTAREN-XR [Concomitant]
     Dosage: 100MG PER DAY
     Route: 048
     Dates: start: 20060501
  5. MIRAPEX [Concomitant]
     Dosage: 1MG PER DAY
     Route: 048
     Dates: start: 20040501
  6. URSODIOL [Concomitant]
     Dosage: 300MG TWICE PER DAY
     Route: 048
     Dates: start: 20060701
  7. FLUTICASONE PROPIONATE [Concomitant]
     Dosage: 100MCG TWICE PER DAY
     Route: 045
     Dates: start: 20050801

REACTIONS (2)
  - HEADACHE [None]
  - RHINITIS [None]
